FAERS Safety Report 5702284-6 (Version None)
Quarter: 2008Q2

REPORT INFORMATION
  Report Type: 
  Country: None (occurrence: None)
  Receive Date: 20080411
  Receipt Date: 20080328
  Transmission Date: 20081010
  Serious: Yes (Death, Hospitalization)
  Sender: FDA-Public Use
  Company Number: FR-AMGEN-UK272141

PATIENT
  Sex: Male

DRUGS (2)
  1. NEULASTA [Suspect]
     Indication: CHEMOTHERAPY
     Route: 058
     Dates: start: 20080317, end: 20080317
  2. VIDAZA [Concomitant]

REACTIONS (3)
  - PYREXIA [None]
  - RESPIRATORY FAILURE [None]
  - SEPSIS [None]
